FAERS Safety Report 17651137 (Version 1)
Quarter: 2020Q2

REPORT INFORMATION
  Report Type: Spontaneous
  Country: US (occurrence: US)
  Receive Date: 20200409
  Receipt Date: 20200409
  Transmission Date: 20200713
  Serious: Yes (Other)
  Sender: FDA-Public Use
  Company Number: US-PFIZER INC-2020070658

PATIENT
  Age: 51 Year
  Sex: Female

DRUGS (1)
  1. LYRICA CR [Suspect]
     Active Substance: PREGABALIN
     Indication: OBESITY
     Dosage: 330 MG, 1X/DAY(1 TABLET AFTER THE EVENING MEAL ONCE A DAY 90 DAYS)
     Route: 048

REACTIONS (6)
  - Off label use [Unknown]
  - Limb discomfort [Unknown]
  - Product use in unapproved indication [Unknown]
  - Gout [Unknown]
  - Blister [Unknown]
  - Deafness [Unknown]
